FAERS Safety Report 17567869 (Version 2)
Quarter: 2020Q2

REPORT INFORMATION
  Report Type: Spontaneous
  Country: FR (occurrence: FR)
  Receive Date: 20200320
  Receipt Date: 20200408
  Transmission Date: 20200713
  Serious: No
  Sender: FDA-Public Use
  Company Number: FR-ARRAY-2020-07615

PATIENT

DRUGS (2)
  1. MEKTOVI [Suspect]
     Active Substance: BINIMETINIB
     Indication: HEPATIC CANCER
     Dosage: 3 DF, BID
     Route: 048
     Dates: start: 20200312
  2. BRAFTOVI [Suspect]
     Active Substance: ENCORAFENIB
     Indication: HEPATIC CANCER
     Dosage: 4 DF, QD
     Route: 048
     Dates: start: 20200312

REACTIONS (3)
  - Acne [Recovering/Resolving]
  - Hallucination, visual [Not Recovered/Not Resolved]
  - Product use in unapproved indication [Unknown]

NARRATIVE: CASE EVENT DATE: 20200312
